FAERS Safety Report 5730013-9 (Version None)
Quarter: 2008Q2

REPORT INFORMATION
  Report Type: 
  Country: None (occurrence: None)
  Receive Date: 20080507
  Receipt Date: 20080428
  Transmission Date: 20081010
  Serious: Yes (Other)
  Sender: FDA-Public Use
  Company Number: US-JNJFOC-20080407784

PATIENT
  Age: 57 Year
  Sex: Female
  Weight: 77.11 kg

DRUGS (4)
  1. EXTRA STRENGTH TYLENOL [Suspect]
     Indication: INSOMNIA
     Route: 048
  2. MICARDIS HCT [Concomitant]
     Indication: HYPERTENSION
  3. TRICOR [Concomitant]
     Indication: BLOOD CHOLESTEROL ABNORMAL
  4. MELOXICAM [Concomitant]
     Indication: ANTIINFLAMMATORY THERAPY

REACTIONS (2)
  - LIP SWELLING [None]
  - OEDEMA MOUTH [None]
